FAERS Safety Report 21866219 (Version 2)
Quarter: 2023Q2

REPORT INFORMATION
  Report Type: Report from Study
  Country: US (occurrence: US)
  Receive Date: 20230116
  Receipt Date: 20230411
  Transmission Date: 20230722
  Serious: No
  Sender: FDA-Public Use
  Company Number: US-ABBVIE-4235395

PATIENT
  Sex: Female

DRUGS (3)
  1. SKYRIZI [Suspect]
     Active Substance: RISANKIZUMAB-RZAA
     Indication: Psoriasis
     Dosage: WEEK ZERO?FORM STRENGTH: 150 MG?EVENT ONSET DATE 2022
     Route: 058
     Dates: start: 20220822, end: 20220822
  2. SKYRIZI [Suspect]
     Active Substance: RISANKIZUMAB-RZAA
     Dosage: EVERY 12 WEEK?FORM STRENGTH: 150 MG
     Route: 058
     Dates: end: 202301
  3. SKYRIZI [Suspect]
     Active Substance: RISANKIZUMAB-RZAA
     Dosage: WEEK 4?FORM STRENGTH: 150 MG?FIRST AND LAST ADMIN DATE 2022
     Route: 058

REACTIONS (1)
  - Drug ineffective [Unknown]
